FAERS Safety Report 10681619 (Version 2)
Quarter: 2015Q1

REPORT INFORMATION
  Report Type: Spontaneous
  Country: FR (occurrence: None)
  Receive Date: 20141224
  Receipt Date: 20150302
  Transmission Date: 20150720
  Serious: Yes (Hospitalization, Other)
  Sender: FDA-Public Use
  Company Number: FR2014GSK039983

PATIENT
  Age: 66 Year
  Sex: Male
  Weight: 75 kg

DRUGS (21)
  1. LEVETIRACETAM. [Concomitant]
     Active Substance: LEVETIRACETAM
  2. NORVIR [Concomitant]
     Active Substance: RITONAVIR
  3. LEVOTHYROX (LEVOTHYROXINE SODIUM) [Concomitant]
     Active Substance: LEVOTHYROXINE SODIUM
  4. MECIR (TAMSULOSIN HYDROCHLORIDE) [Concomitant]
  5. APROVEL (IREBESARTAN) [Concomitant]
  6. PREZISTA [Concomitant]
     Active Substance: DARUNAVIR ETHANOLATE
  7. PREZISTA [Concomitant]
     Active Substance: DARUNAVIR ETHANOLATE
  8. STILNOX (ZOLPIDEM TARTRATE) FILM-COATED TABLET [Concomitant]
     Active Substance: ZOLPIDEM TARTRATE
  9. PLAVIX (CLOPIDOGREL BISULFATE) [Concomitant]
  10. TIVICAY [Suspect]
     Active Substance: DOLUTEGRAVIR SODIUM
     Indication: HIV INFECTION
     Route: 048
     Dates: start: 20141204
  11. MORPHINE (MORPHINE) UNKNOWN [Suspect]
     Active Substance: MORPHINE
     Indication: PRODUCT USED FOR UNKNOWN INDICATION
     Dates: end: 20141215
  12. ASPEGIC [Concomitant]
     Active Substance: ASPIRIN DL-LYSINE
  13. OXYNORM (OXYCODONE HYDROCHLORIDE) (OXYCODONE HYDROCHLORIDE) [Suspect]
     Active Substance: OXYCODONE HYDROCHLORIDE
     Indication: PRODUCT USED FOR UNKNOWN INDICATION
     Dates: end: 20141215
  14. LYRICA [Suspect]
     Active Substance: PREGABALIN
     Indication: PRODUCT USED FOR UNKNOWN INDICATION
     Dates: end: 20141215
  15. COLCHICINE. [Concomitant]
     Active Substance: COLCHICINE
  16. ATARAX [Suspect]
     Active Substance: HYDROXYZINE\HYDROXYZINE HYDROCHLORIDE
     Indication: PRODUCT USED FOR UNKNOWN INDICATION
     Dates: end: 20141215
  17. KIVEXA [Concomitant]
     Active Substance: ABACAVIR SULFATE\LAMIVUDINE
  18. AMLODIPINE [Concomitant]
     Active Substance: AMLODIPINE BESYLATE
  19. ZYLORIC (ALLOPURINOL) [Concomitant]
     Active Substance: ALLOPURINOL
  20. NORVIR [Concomitant]
     Active Substance: RITONAVIR
  21. TAHOR [Concomitant]
     Active Substance: ATORVASTATIN CALCIUM

REACTIONS (3)
  - Disorientation [None]
  - Confusional state [None]
  - Dementia [None]

NARRATIVE: CASE EVENT DATE: 201412
